FAERS Safety Report 6689064-2 (Version None)
Quarter: 2010Q2

REPORT INFORMATION
  Report Type: 
  Country: None (occurrence: None)
  Receive Date: 20100409
  Receipt Date: 20100407
  Transmission Date: 20101027
  Serious: No
  Sender: FDA-Public Use
  Company Number: 2010SP014682

PATIENT
  Age: 65 Year
  Sex: Female

DRUGS (3)
  1. PEG-INTRON [Suspect]
     Indication: HEPATITIS C
     Dosage: SC
     Route: 058
  2. REBETOL [Suspect]
     Indication: HEPATITIS C
     Dosage: PO
     Route: 048
     Dates: start: 20091209
  3. FERON (INTERFERON) [Suspect]
     Indication: HEPATITIS C
     Dosage: INDRP
     Dates: start: 20091209

REACTIONS (3)
  - ECZEMA [None]
  - HYPOAESTHESIA [None]
  - STOMATITIS [None]
